FAERS Safety Report 11651657 (Version 2)
Quarter: 2015Q4

REPORT INFORMATION
  Report Type: Spontaneous
  Country: DE (occurrence: DE)
  Receive Date: 20151022
  Receipt Date: 20151116
  Transmission Date: 20160304
  Serious: Yes (Hospitalization)
  Sender: FDA-Public Use
  Company Number: DE-ROCHE-1621797

PATIENT
  Age: 46 Year

DRUGS (3)
  1. VEMURAFENIB [Suspect]
     Active Substance: VEMURAFENIB
     Route: 048
     Dates: start: 20150810
  2. VEMURAFENIB [Suspect]
     Active Substance: VEMURAFENIB
     Indication: MALIGNANT MELANOMA STAGE IV
     Route: 048
     Dates: start: 20150714
  3. ZIENAM [Concomitant]
     Active Substance: CILASTATIN SODIUM\IMIPENEM

REACTIONS (3)
  - General physical health deterioration [Recovered/Resolved]
  - Pyrexia [Unknown]
  - Generalised erythema [Unknown]

NARRATIVE: CASE EVENT DATE: 20150722
